FAERS Safety Report 4332458-0 (Version None)
Quarter: 2004Q2

REPORT INFORMATION
  Report Type: 
  Country: None (occurrence: None)
  Receive Date: 20040401
  Receipt Date: 20040319
  Transmission Date: 20050107
  Serious: Yes (Other)
  Sender: FDA-Public Use
  Company Number: HQWYE575027JAN04

PATIENT
  Age: 68 Year
  Sex: Male

DRUGS (5)
  1. CORDAREX (AMIODARONE, UNSPEC) [Suspect]
     Indication: ATRIAL FIBRILLATION
     Dosage: 200 MG 1X PER 1 DAY
     Dates: start: 20020801, end: 20040101
  2. CORDAREX (AMIODARONE, UNSPEC) [Suspect]
     Indication: ATRIAL FLUTTER
     Dosage: 200 MG 1X PER 1 DAY
     Dates: start: 20020801, end: 20040101
  3. ATACAND [Concomitant]
  4. PHYSIOTENS ^GIULINI^ (MOXONIDINE) [Concomitant]
  5. CONCOR (BISOPRODOL) [Concomitant]

REACTIONS (3)
  - ALVEOLITIS [None]
  - BLOOD LACTATE DEHYDROGENASE INCREASED [None]
  - RESPIRATORY FAILURE [None]
